FAERS Safety Report 9504250 (Version 2)
Quarter: 2013Q3

REPORT INFORMATION
  Report Type: Spontaneous
  Country: US (occurrence: US)
  Receive Date: 20130906
  Receipt Date: 20130906
  Transmission Date: 20140515
  Serious: Yes (Hospitalization, Other)
  Sender: FDA-Public Use
  Company Number: US-009507513-1203USA03983

PATIENT
  Sex: Female

DRUGS (1)
  1. FOSAMAX [Suspect]
     Indication: OSTEOPOROSIS
     Route: 048
     Dates: start: 200307, end: 200803

REACTIONS (7)
  - Femur fracture [Unknown]
  - Open reduction of fracture [Unknown]
  - Hip fracture [Recovered/Resolved]
  - Hip surgery [Recovered/Resolved with Sequelae]
  - Anxiety [Unknown]
  - Depression [Unknown]
  - Fall [Unknown]
